FAERS Safety Report 20146126 (Version 1)
Quarter: 2021Q4

REPORT INFORMATION
  Report Type: Spontaneous
  Country: US (occurrence: None)
  Receive Date: 20211203
  Receipt Date: 20211203
  Transmission Date: 20220303
  Serious: No
  Sender: FDA-Public Use
  Company Number: None

PATIENT
  Sex: Female

DRUGS (55)
  1. LEUKINE [Suspect]
     Active Substance: SARGRAMOSTIM
     Indication: Breast cancer female
     Dosage: FREQUENCY : DAILY;?
     Route: 058
  2. YERVOY [Concomitant]
  3. KEYTRUDA [Concomitant]
  4. VITAMIN C +D3/Rose hips [Concomitant]
  5. OMEGA3 [Concomitant]
  6. KLONOPIN [Concomitant]
  7. VALTREX [Concomitant]
  8. LEMON JUICE [Concomitant]
  9. HYLAND CELL SALTS [Concomitant]
  10. MAGNESIUM [Concomitant]
  11. ION GUT HEALTH [Concomitant]
  12. BETA GLUCAN [Concomitant]
  13. METATROL [Concomitant]
  14. IMMPOWER [Concomitant]
  15. 5 DEFENDERS REAL MUSHROOM [Concomitant]
  16. LYSINE [Concomitant]
  17. MARINE PHYTOPLANKTON [Concomitant]
  18. FULVIC AND HUMIC MINERALS [Concomitant]
  19. SHILAJIT [Concomitant]
  20. CHLORELLA [Concomitant]
  21. WOBENZYME PS [Concomitant]
  22. PROTEOLYTIC ENZYMES [Concomitant]
  23. BORON AMORPHOUS FINE [Concomitant]
  24. BIOTIN [Concomitant]
  25. MILK THISTIE XTRA [Concomitant]
  26. DANDIPLEX [Concomitant]
  27. CAN-GEST [Concomitant]
  28. SHARK LIVER OIL [Suspect]
     Active Substance: SHARK LIVER OIL
  29. SUPER K LIFE EXTENSION [Concomitant]
  30. MK-7 JARROW [Concomitant]
  31. MEG VITAMIN K2 [Concomitant]
  32. SELENIUM [Concomitant]
  33. PYRIDOXAL-5 PHOSPHATE [Concomitant]
  34. VITAMIN D3 [Concomitant]
     Active Substance: CHOLECALCIFEROL
  35. SILICON DIOXIDE [Concomitant]
     Active Substance: SILICON DIOXIDE
  36. ZINC [Concomitant]
  37. CHELATED [Concomitant]
  38. DIMETHYL SULFONE [Concomitant]
     Active Substance: DIMETHYL SULFONE
  39. QUERCETIN [Concomitant]
  40. BIOMINERALS 2 [Concomitant]
  41. ARTICHOKE EXTRACT [Concomitant]
  42. VITAMIN E BLEND [Concomitant]
  43. ANNATTP E 300 [Concomitant]
  44. VITAMIN C [Concomitant]
  45. SULFORAPHANE AVMACOL [Concomitant]
  46. BROCCOLI EXTRACT [Concomitant]
  47. ULTIMATE HEART HEALTH [Concomitant]
  48. GARLIC [Concomitant]
  49. MACUGUARD [Concomitant]
  50. FISH OIL BURP-LESS [Concomitant]
  51. MELATONIN MAXIMUM STRENGTH [Concomitant]
  52. CBD AND THC [Concomitant]
  53. PANCREATIC ENZYMES [Concomitant]
  54. FERMENTED BLACK GARLIC PASTE [Concomitant]
  55. PROTEIN [Concomitant]

REACTIONS (5)
  - Injection site erythema [None]
  - Injection site pruritus [None]
  - Arthralgia [None]
  - Bone pain [None]
  - Influenza like illness [None]
